FAERS Safety Report 9165567 (Version 4)
Quarter: 2013Q2

REPORT INFORMATION
  Report Type: Spontaneous
  Country: CA (occurrence: None)
  Receive Date: 20130213
  Receipt Date: 20130405
  Transmission Date: 20140414
  Serious: Yes (Hospitalization, Other)
  Sender: FDA-Public Use
  Company Number: 2013034634

PATIENT
  Age: 16 Year
  Sex: Female

DRUGS (8)
  1. PRIVIGEN [Suspect]
     Dosage: 125G TOTAL, 20G, 125G TOTAL, 5 G, INTRAVENOUS (NOT OTHERWISE SPECIFIED)
     Route: 042
     Dates: start: 20121025, end: 20121025
  2. MYFORTIC (MYCOPHENOLATE SODIUM) [Concomitant]
  3. PREDNISONE (PREDNISONE) [Concomitant]
  4. VITAMIN D (ERGOCALCIFEROL) [Concomitant]
  5. PLAQUENIL (HYDROXYCHLOROQUINE PHOSPHATE) [Concomitant]
  6. CYMBALTA (DULOXETINE HYDROCHLORIDE) [Concomitant]
  7. PREVACID (LANSOPRAZOLE) [Concomitant]
  8. GRAVOL (DIMENHYDRINATE) [Concomitant]

REACTIONS (17)
  - Haemolytic anaemia [None]
  - Coombs direct test positive [None]
  - Reticulocyte count increased [None]
  - Nausea [None]
  - Pain in extremity [None]
  - Headache [None]
  - Vomiting [None]
  - General physical health deterioration [None]
  - Erythema [None]
  - Asthenia [None]
  - Myalgia [None]
  - Diarrhoea [None]
  - Fatigue [None]
  - Chromaturia [None]
  - Conjunctival pallor [None]
  - Heart rate increased [None]
  - Migraine [None]
